FAERS Safety Report 4946640-2 (Version None)
Quarter: 2006Q1

REPORT INFORMATION
  Report Type: 
  Country: None (occurrence: None)
  Receive Date: 20060201
  Receipt Date: 20051215
  Transmission Date: 20060701
  Serious: No
  Sender: FDA-Public Use
  Company Number: 2005PV005904

PATIENT
  Age: 67 Year
  Sex: Male
  Weight: 107.0489 kg

DRUGS (7)
  1. BYETTA [Suspect]
     Indication: DIABETES MELLITUS NON-INSULIN-DEPENDENT
     Dosage: 5 MCG; BID; SC
     Route: 058
     Dates: start: 20051210
  2. AVANDIA [Concomitant]
  3. CRESTOR [Concomitant]
  4. LIPITOR [Concomitant]
  5. LISINOPRIL [Concomitant]
  6. ATENOLOL [Concomitant]
  7. AVANDIA [Concomitant]

REACTIONS (10)
  - ASTHENIA [None]
  - CHILLS [None]
  - DRUG INEFFECTIVE [None]
  - HEADACHE [None]
  - INCREASED APPETITE [None]
  - INFLUENZA LIKE ILLNESS [None]
  - NAUSEA [None]
  - THERAPEUTIC RESPONSE UNEXPECTED [None]
  - WEIGHT DECREASED [None]
  - WEIGHT INCREASED [None]
